FAERS Safety Report 13552608 (Version 8)
Quarter: 2017Q2

REPORT INFORMATION
  Report Type: Report from Study
  Country: None (occurrence: NZ)
  Receive Date: 20170517
  Receipt Date: 20170629
  Transmission Date: 20170830
  Serious: Yes (Hospitalization, Other)
  Sender: FDA-Public Use
  Company Number: NZ-ABBVIE-17K-118-1973247-00

PATIENT
  Age: 37 Year
  Sex: Female

DRUGS (5)
  1. HUMIRA [Suspect]
     Active Substance: ADALIMUMAB
     Route: 058
     Dates: start: 20170524, end: 20170524
  2. HUMIRA [Suspect]
     Active Substance: ADALIMUMAB
     Route: 058
     Dates: start: 20170607, end: 20170614
  3. HUMIRA [Suspect]
     Active Substance: ADALIMUMAB
     Indication: CROHN^S DISEASE
     Dosage: LOADING DOSE - 4 INJECTIONS
     Route: 058
     Dates: start: 20170510, end: 20170510
  4. METHOTREXATE. [Concomitant]
     Active Substance: METHOTREXATE
     Indication: PRODUCT USED FOR UNKNOWN INDICATION
  5. OLANZAPINE. [Concomitant]
     Active Substance: OLANZAPINE
     Indication: PRODUCT USED FOR UNKNOWN INDICATION

REACTIONS (22)
  - Hypersomnia [Unknown]
  - Depression [Unknown]
  - Myalgia [Unknown]
  - Anxiety [Unknown]
  - Pyrexia [Unknown]
  - Abdominal pain [Unknown]
  - Dizziness [Unknown]
  - Night sweats [Unknown]
  - Injection site bruising [Not Recovered/Not Resolved]
  - Mental disorder [Unknown]
  - Depressed mood [Unknown]
  - Injection site pain [Not Recovered/Not Resolved]
  - Injection site erythema [Unknown]
  - Abdominal discomfort [Unknown]
  - Asthenia [Unknown]
  - Mood swings [Recovered/Resolved]
  - Mood swings [Unknown]
  - Fatigue [Unknown]
  - Dyspnoea [Unknown]
  - Tremor [Unknown]
  - Suicidal ideation [Not Recovered/Not Resolved]
  - Depressed mood [Recovering/Resolving]

NARRATIVE: CASE EVENT DATE: 2017
